FAERS Safety Report 14700247 (Version 1)
Quarter: 2018Q1

REPORT INFORMATION
  Report Type: Spontaneous
  Country: RU (occurrence: RU)
  Receive Date: 20180330
  Receipt Date: 20180330
  Transmission Date: 20180509
  Serious: Yes (Hospitalization)
  Sender: FDA-Public Use
  Company Number: RU-ALLERGAN-1816286US

PATIENT
  Age: 61 Year
  Sex: Female
  Weight: 65 kg

DRUGS (3)
  1. ATARAX [Suspect]
     Active Substance: HYDROXYZINE HYDROCHLORIDE
     Indication: DIZZINESS
     Dosage: UNK UNK, QD
     Route: 048
     Dates: start: 20170811, end: 20180201
  2. BETASERC [Suspect]
     Active Substance: BETAHISTINE
     Indication: DIZZINESS
     Dosage: UNK UNK, QD
     Route: 048
     Dates: start: 20170811, end: 20180201
  3. ESCITALOPRAM OXALATE - BP [Suspect]
     Active Substance: ESCITALOPRAM OXALATE
     Indication: DIZZINESS
     Dosage: UNK, QD
     Route: 048
     Dates: start: 20170811, end: 20180201

REACTIONS (2)
  - Off label use [Unknown]
  - Encephalopathy [Recovered/Resolved]

NARRATIVE: CASE EVENT DATE: 20180201
